FAERS Safety Report 4335016-7 (Version None)
Quarter: 2004Q2

REPORT INFORMATION
  Report Type: 
  Country: None (occurrence: None)
  Receive Date: 20040408
  Receipt Date: 20040402
  Transmission Date: 20050107
  Serious: Yes (Hospitalization)
  Sender: FDA-Public Use
  Company Number: US-ROCHE-363655

PATIENT
  Age: 78 Year
  Sex: Male

DRUGS (7)
  1. DIAZEPAM [Suspect]
     Indication: ANXIETY DISORDER
     Route: 065
     Dates: start: 19740615
  2. DIAZEPAM [Suspect]
     Dosage: DOSAGE TAPERED AND DISCONTINUED DURING THE HOSPITALISATION.
     Route: 065
  3. PAROXETINE HCL [Concomitant]
  4. LEVOTHYROXINE SODIUM [Concomitant]
  5. RABEPRAZOLE SODIUM [Concomitant]
  6. RANITIDINE [Concomitant]
  7. FINASTERIDE [Concomitant]

REACTIONS (1)
  - DELUSION OF REPLACEMENT [None]
